FAERS Safety Report 8585307-9 (Version None)
Quarter: 2012Q3

REPORT INFORMATION
  Report Type: 
  Country: None (occurrence: None)
  Receive Date: 20120810
  Receipt Date: 20120807
  Transmission Date: 20120928
  Serious: Yes (Life-Threatening, Hospitalization)
  Sender: FDA-Public Use
  Company Number: PHHO2012CA010871

PATIENT
  Sex: Female

DRUGS (1)
  1. GILENYA [Suspect]
     Dosage: 41 CAPSULES
     Route: 048
     Dates: start: 20120723

REACTIONS (2)
  - ACCIDENTAL EXPOSURE [None]
  - OVERDOSE [None]
